FAERS Safety Report 11512263 (Version 1)
Quarter: 2015Q3

REPORT INFORMATION
  Report Type: Spontaneous
  Country: US (occurrence: US)
  Receive Date: 20150916
  Receipt Date: 20150916
  Transmission Date: 20151125
  Serious: Yes (Hospitalization)
  Sender: FDA-Public Use
  Company Number: US-HOSPIRA-3006807

PATIENT
  Age: 59 Year
  Sex: Female
  Weight: 59.45 kg

DRUGS (9)
  1. ADRIAMYCIN [Suspect]
     Active Substance: DOXORUBICIN HYDROCHLORIDE
     Indication: THYMOMA MALIGNANT
     Dates: start: 2006
  2. SUTENT [Suspect]
     Active Substance: SUNITINIB MALATE
     Indication: THYMOMA MALIGNANT
     Dosage: 1 CAPSULE DAILY
     Route: 048
     Dates: start: 20150825
  3. ALIMTA [Suspect]
     Active Substance: PEMETREXED DISODIUM
     Indication: THYMOMA MALIGNANT
     Dates: start: 20150120, end: 20150311
  4. SUTENT [Suspect]
     Active Substance: SUNITINIB MALATE
     Indication: THYMOMA MALIGNANT
     Dates: start: 20150401
  5. AFINITOR [Suspect]
     Active Substance: EVEROLIMUS
     Indication: THYMOMA MALIGNANT
     Dates: start: 20141110
  6. CARBOPLATIN. [Suspect]
     Active Substance: CARBOPLATIN
     Indication: THYMOMA MALIGNANT
     Dates: start: 20130711, end: 20140327
  7. TAXOL [Suspect]
     Active Substance: PACLITAXEL
     Indication: THYMOMA MALIGNANT
     Dates: start: 20130711, end: 20140327
  8. CISPLATIN. [Suspect]
     Active Substance: CISPLATIN
     Indication: THYMOMA MALIGNANT
     Dates: start: 2006
  9. CYTOXAN [Suspect]
     Active Substance: CYCLOPHOSPHAMIDE
     Indication: THYMOMA MALIGNANT
     Dates: start: 2006

REACTIONS (3)
  - Erythema multiforme [Not Recovered/Not Resolved]
  - Pelvic pain [Not Recovered/Not Resolved]
  - Drug ineffective [Not Recovered/Not Resolved]
